FAERS Safety Report 4800006-4 (Version None)
Quarter: 2005Q4

REPORT INFORMATION
  Report Type: 
  Country: None (occurrence: None)
  Receive Date: 20051017
  Receipt Date: 20051007
  Transmission Date: 20060501
  Serious: Yes (Other)
  Sender: FDA-Public Use
  Company Number: PHBS2005JP14897

PATIENT

DRUGS (3)
  1. LAMISIL [Suspect]
     Route: 048
  2. CLARITHROMYCIN [Concomitant]
  3. DRUGS FOR FUNCTIONAL GASTROINTEST. DISORDERS [Concomitant]

REACTIONS (1)
  - VENTRICULAR FIBRILLATION [None]
